FAERS Safety Report 22310155 (Version 1)
Quarter: 2023Q2

REPORT INFORMATION
  Report Type: Spontaneous
  Country: GB (occurrence: GB)
  Receive Date: 20230511
  Receipt Date: 20230511
  Transmission Date: 20230721
  Serious: Yes (Other)
  Sender: FDA-Public Use
  Company Number: GB-MHRA-MED-202305011744015580-WYDJF

PATIENT
  Sex: Female
  Weight: 170 kg

DRUGS (1)
  1. LISINOPRIL AND HYDROCHLOROTHIAZIDE [Suspect]
     Active Substance: HYDROCHLOROTHIAZIDE\LISINOPRIL
     Indication: Product used for unknown indication
     Dosage: 10 MILLIGRAM DAILY; 10MG ONCE A DAY
     Route: 065

REACTIONS (1)
  - Menopause [Unknown]

NARRATIVE: CASE EVENT DATE: 20230110
